FAERS Safety Report 6760496-7 (Version None)
Quarter: 2010Q2

REPORT INFORMATION
  Report Type: 
  Country: None (occurrence: None)
  Receive Date: 20100604
  Receipt Date: 20081106
  Transmission Date: 20101027
  Serious: Yes (Hospitalization, Other)
  Sender: FDA-Public Use
  Company Number: 2008BH010876

PATIENT
  Age: 14 Month

DRUGS (1)
  1. ADVATE [Suspect]
     Indication: HAEMOPHILIA
     Dosage: 500 UNITS ; EVERY WEEK

REACTIONS (1)
  - FACTOR VIII INHIBITION [None]
